FAERS Safety Report 6792375-3 (Version None)
Quarter: 2010Q2

REPORT INFORMATION
  Report Type: 
  Country: None (occurrence: None)
  Receive Date: 20100624
  Receipt Date: 20080926
  Transmission Date: 20101027
  Serious: No
  Sender: FDA-Public Use
  Company Number: US-PFIZER INC-2008064476

PATIENT
  Sex: Female
  Weight: 63.5 kg

DRUGS (4)
  1. DIDREX [Suspect]
     Indication: WEIGHT DECREASED
  2. AMBIEN [Concomitant]
  3. LORAZEPAM [Concomitant]
  4. OXYCONTIN [Concomitant]

REACTIONS (1)
  - DRUG SCREEN POSITIVE [None]
